FAERS Safety Report 16651850 (Version 1)
Quarter: 2019Q3

REPORT INFORMATION
  Report Type: Spontaneous
  Country: US (occurrence: US)
  Receive Date: 20190617
  Receipt Date: 20190617
  Transmission Date: 20191004
  Serious: Yes (Hospitalization)
  Sender: FDA-Public Use
  Company Number: None

PATIENT
  Age: 20 Month
  Sex: Male

DRUGS (1)
  1. VIGABATRIN FWD [Suspect]
     Active Substance: VIGABATRIN
     Indication: DRUG THERAPY
     Dosage: PACKETS
     Route: 048
     Dates: start: 20181212

REACTIONS (1)
  - Seizure [None]

NARRATIVE: CASE EVENT DATE: 201905
